FAERS Safety Report 8787358 (Version 1)
Quarter: 2012Q4

REPORT INFORMATION
  Report Type: Report from Study
  Country: US (occurrence: US)
  Receive Date: 20120914
  Receipt Date: 20120914
  Transmission Date: 20130627
  Serious: No
  Sender: FDA-Public Use
  Company Number: US-VERTEX PHARMACEUTICAL INC.-AE-2012-010902

PATIENT
  Age: 52 Year
  Sex: Female
  Weight: 62.27 kg

DRUGS (8)
  1. INCIVEK [Suspect]
     Indication: HEPATITIS C
     Route: 048
  2. PEGASYS [Concomitant]
     Indication: HEPATITIS C
  3. RIBAPAK PAK [Concomitant]
     Indication: HEPATITIS C
  4. MILK THISTLE [Concomitant]
  5. ULTRAM [Concomitant]
  6. GLUCO/CHONDR [Concomitant]
  7. EPIPEN [Concomitant]
  8. ANUCORT-HC SUP [Concomitant]

REACTIONS (5)
  - Back pain [Unknown]
  - Nausea [Unknown]
  - Vomiting [Unknown]
  - Diarrhoea [Unknown]
  - Haemorrhoids [Unknown]
